FAERS Safety Report 7032988-7 (Version None)
Quarter: 2010Q4

REPORT INFORMATION
  Report Type: 
  Country: None (occurrence: None)
  Receive Date: 20101007
  Receipt Date: 20100930
  Transmission Date: 20110411
  Serious: Yes (Other)
  Sender: FDA-Public Use
  Company Number: US-US-EMD SERONO, INC.-7019609

PATIENT
  Sex: Male

DRUGS (6)
  1. REBIF [Suspect]
     Indication: PRODUCT USED FOR UNKNOWN INDICATION
     Route: 058
     Dates: start: 20100526, end: 20100921
  2. REBIF [Suspect]
     Route: 058
     Dates: start: 20100101
  3. SOLU-MEDROL [Concomitant]
  4. UNSPECIFIED MEDICATIONS [Concomitant]
     Indication: THYROID DISORDER
  5. UNSPECIFIED MEDICATIONS [Concomitant]
     Indication: ARTHRITIS
  6. UNSPECIFIED MEDICATION [Concomitant]
     Indication: HYPERTENSION

REACTIONS (2)
  - INFLUENZA LIKE ILLNESS [None]
  - PNEUMONIA [None]
